FAERS Safety Report 18789179 (Version 1)
Quarter: 2021Q1

REPORT INFORMATION
  Report Type: Spontaneous
  Country: US (occurrence: US)
  Receive Date: 20210126
  Receipt Date: 20210126
  Transmission Date: 20210419
  Serious: Yes (Life-Threatening)
  Sender: FDA-Public Use
  Company Number: None

PATIENT
  Age: 18 Year
  Sex: Female
  Weight: 63.5 kg

DRUGS (1)
  1. NEXPLANON [Suspect]
     Active Substance: ETONOGESTREL
     Dates: start: 20201207

REACTIONS (9)
  - Suicidal ideation [None]
  - Mood swings [None]
  - Chest pain [None]
  - Influenza like illness [None]
  - Irritability [None]
  - Dyspnoea [None]
  - Menstruation irregular [None]
  - Dysmenorrhoea [None]
  - Panic attack [None]

NARRATIVE: CASE EVENT DATE: 20210117
